FAERS Safety Report 12509110 (Version 2)
Quarter: 2016Q3

REPORT INFORMATION
  Report Type: Spontaneous
  Country: US (occurrence: US)
  Receive Date: 20160629
  Receipt Date: 20160804
  Transmission Date: 20161109
  Serious: Yes (Hospitalization, Other)
  Sender: FDA-Public Use
  Company Number: US-009507513-1606USA010663

PATIENT
  Age: 51 Year
  Sex: Female

DRUGS (3)
  1. ALBENDAZOL [Suspect]
     Active Substance: ALBENDAZOLE
     Indication: INFECTION PARASITIC
     Dosage: UNK
  2. PREDNISONE. [Suspect]
     Active Substance: PREDNISONE
     Dosage: UNK
  3. STROMECTOL [Suspect]
     Active Substance: IVERMECTIN
     Indication: INFECTION PARASITIC
     Dosage: UNK
     Route: 048

REACTIONS (4)
  - Acute respiratory distress syndrome [Unknown]
  - Drug ineffective [Unknown]
  - Haemolytic uraemic syndrome [Unknown]
  - Bacterial sepsis [Unknown]
